FAERS Safety Report 23563607 (Version 8)
Quarter: 2024Q2

REPORT INFORMATION
  Report Type: Report from Study
  Country: CA (occurrence: CA)
  Receive Date: 20240226
  Receipt Date: 20240610
  Transmission Date: 20240715
  Serious: Yes (Hospitalization, Other)
  Sender: FDA-Public Use
  Company Number: CA-JNJFOC-20240104964

PATIENT
  Age: 10 Year
  Sex: Female
  Weight: 45.4 kg

DRUGS (5)
  1. REMICADE [Suspect]
     Active Substance: INFLIXIMAB
     Indication: Colitis ulcerative
     Route: 041
     Dates: start: 20231228
  2. REMICADE [Suspect]
     Active Substance: INFLIXIMAB
     Route: 041
     Dates: start: 20231221
  3. REMICADE [Suspect]
     Active Substance: INFLIXIMAB
     Dosage: PHYSICIAN REQUESTING REMICADE 450MG WEEK 0, 1, 4 RE-INDUCTION COUNTING HER DOSE ON FEB 23 AS WEEK 0,
     Route: 041
  4. REMICADE [Suspect]
     Active Substance: INFLIXIMAB
     Dosage: WITH REINDUCTION OF WEEK 0, 1, 4, THEN Q4 WEEK MAINTENANCE.
     Route: 041
  5. METHOTREXATE [Concomitant]
     Active Substance: METHOTREXATE

REACTIONS (8)
  - Colitis ulcerative [Not Recovered/Not Resolved]
  - Haemoglobin decreased [Unknown]
  - Headache [Unknown]
  - Vision blurred [Unknown]
  - Pruritus [Unknown]
  - Vomiting [Recovered/Resolved]
  - Gastroenteritis viral [Unknown]
  - Pyrexia [Not Recovered/Not Resolved]

NARRATIVE: CASE EVENT DATE: 20231230
